FAERS Safety Report 18365147 (Version 1)
Quarter: 2020Q4

REPORT INFORMATION
  Report Type: Report from Study
  Country: US (occurrence: US)
  Receive Date: 20201009
  Receipt Date: 20201009
  Transmission Date: 20210114
  Serious: No
  Sender: FDA-Public Use
  Company Number: US-TERSERA THERAPEUTICS LLC-US2020GSK092031

PATIENT

DRUGS (1)
  1. ROLAPITANT HYDROCHLORIDE [Suspect]
     Active Substance: ROLAPITANT
     Dosage: 2 DF (PRIOR TO CHEMO EVERY 2 WEEKS. BRING TO THE CLINIC WITH YOU ON DAY OF CHEMO)
     Route: 048

REACTIONS (1)
  - Vaginal disorder [Unknown]
